FAERS Safety Report 4876962-5 (Version None)
Quarter: 2006Q1

REPORT INFORMATION
  Report Type: 
  Country: None (occurrence: None)
  Receive Date: 20060110
  Receipt Date: 20060102
  Transmission Date: 20060701
  Serious: Yes (Other)
  Sender: FDA-Public Use
  Company Number: PHRM2006FR00451

PATIENT
  Age: 78 Year
  Sex: Male

DRUGS (4)
  1. ATENOLOL [Concomitant]
     Indication: HYPERTENSION
     Route: 048
     Dates: start: 19970101
  2. HYTACAND [Concomitant]
     Route: 048
     Dates: start: 20050601
  3. KARDEGIC [Concomitant]
     Dates: start: 19970101
  4. LESCOL [Suspect]
     Indication: HYPERCHOLESTEROLAEMIA
     Dosage: 40 MG, QD
     Route: 048
     Dates: start: 20051020

REACTIONS (1)
  - HYPERKALAEMIA [None]
